FAERS Safety Report 8031233-3 (Version None)
Quarter: 2012Q1

REPORT INFORMATION
  Report Type: 
  Country: None (occurrence: None)
  Receive Date: 20120109
  Receipt Date: 20120103
  Transmission Date: 20120608
  Serious: Yes (Hospitalization)
  Sender: FDA-Public Use
  Company Number: US-MERCK-1201USA00312

PATIENT
  Age: 66 Year
  Sex: Female

DRUGS (2)
  1. FOSAMAX [Suspect]
     Indication: OSTEOPENIA
     Route: 048
  2. CALCIUM CARBONATE [Concomitant]
     Route: 048

REACTIONS (2)
  - FEMUR FRACTURE [None]
  - LIMB ASYMMETRY [None]
